FAERS Safety Report 18395699 (Version 5)
Quarter: 2021Q1

REPORT INFORMATION
  Report Type: Report from Study
  Country: AR (occurrence: AR)
  Receive Date: 20201018
  Receipt Date: 20210330
  Transmission Date: 20210419
  Serious: Yes (Other)
  Sender: FDA-Public Use
  Company Number: NVSC2020AR275576

PATIENT
  Age: 39 Year
  Sex: Female

DRUGS (4)
  1. SANDOSTATIN LAR DEPOT [Suspect]
     Active Substance: OCTREOTIDE ACETATE
  2. SANDOSTATIN LAR DEPOT [Suspect]
     Active Substance: OCTREOTIDE ACETATE
     Indication: NEUROENDOCRINE TUMOUR
     Dosage: 30 MG, QMO (EVERY 28 DAYS)
     Route: 065
     Dates: start: 20120101
  3. AFINITOR [Suspect]
     Active Substance: EVEROLIMUS
     Indication: NEUROENDOCRINE TUMOUR
     Dosage: 10 MG, QD
     Route: 065
     Dates: start: 20200930
  4. SANDOSTATIN LAR DEPOT [Suspect]
     Active Substance: OCTREOTIDE ACETATE

REACTIONS (13)
  - Syncope [Unknown]
  - Discomfort [Unknown]
  - Haemorrhage [Unknown]
  - Malaise [Unknown]
  - Malignant neoplasm progression [Unknown]
  - Inflammation [Unknown]
  - Gastrointestinal neoplasm [Unknown]
  - Hepatic neoplasm [Unknown]
  - Neuroendocrine tumour [Unknown]
  - Epistaxis [Unknown]
  - Liver disorder [Unknown]
  - Infection [Unknown]
  - Vaginal haemorrhage [Unknown]

NARRATIVE: CASE EVENT DATE: 20201201
